FAERS Safety Report 7730348-4 (Version None)
Quarter: 2011Q3

REPORT INFORMATION
  Report Type: 
  Country: None (occurrence: None)
  Receive Date: 20110906
  Receipt Date: 20110509
  Transmission Date: 20111222
  Serious: No
  Sender: FDA-Public Use
  Company Number: US-GLAXOSMITHKLINE-A0926610A

PATIENT
  Age: 56 Year
  Sex: Female

DRUGS (8)
  1. LAMICTAL [Suspect]
     Indication: CLUSTER HEADACHE
     Dosage: 25MG PER DAY
     Route: 048
     Dates: start: 20110505, end: 20110508
  2. XANAX [Concomitant]
  3. BENADRYL [Concomitant]
  4. DEMEROL [Concomitant]
  5. FERROUS SULFATE TAB [Concomitant]
  6. CALCIUM GLUCONATE [Concomitant]
  7. BENTYL [Concomitant]
  8. PHENERGAN HCL [Concomitant]

REACTIONS (6)
  - MYALGIA [None]
  - FOREIGN BODY SENSATION IN EYES [None]
  - SENSORY DISTURBANCE [None]
  - RASH [None]
  - NASAL ULCER [None]
  - ABDOMINAL PAIN UPPER [None]
